FAERS Safety Report 18309398 (Version 4)
Quarter: 2020Q4

REPORT INFORMATION
  Report Type: Spontaneous
  Country: US (occurrence: US)
  Receive Date: 20200924
  Receipt Date: 20201204
  Transmission Date: 20210113
  Serious: No
  Sender: FDA-Public Use
  Company Number: US-PFIZER INC-2020363111

PATIENT
  Age: 74 Year
  Sex: Female
  Weight: 68 kg

DRUGS (4)
  1. GABAPENTIN. [Concomitant]
     Active Substance: GABAPENTIN
     Dosage: UNK
  2. LETROZOLE. [Suspect]
     Active Substance: LETROZOLE
     Indication: BREAST CANCER METASTATIC
     Dosage: 2.5 MG, CYCLIC (1 TABLET BY MOUTH FOR 28 DAYS)
     Route: 048
     Dates: start: 2016
  3. IBRANCE [Suspect]
     Active Substance: PALBOCICLIB
     Indication: BREAST CANCER METASTATIC
     Dosage: 100 MG, CYCLIC (100MG, 1 TABLET BY MOUTH FOR 21 DAYS AND OFF 7DAYS)
     Route: 048
  4. PANTOPRAZOLE [Concomitant]
     Active Substance: PANTOPRAZOLE
     Indication: GASTROOESOPHAGEAL REFLUX DISEASE
     Dosage: UNK

REACTIONS (12)
  - Sensory disturbance [Unknown]
  - Spondylitis [Unknown]
  - Ear swelling [Unknown]
  - Infection [Not Recovered/Not Resolved]
  - Gingival swelling [Unknown]
  - Ear discomfort [Unknown]
  - Swelling face [Unknown]
  - Stomatitis [Unknown]
  - Lymphadenopathy [Unknown]
  - Paraesthesia [Unknown]
  - Swelling [Unknown]
  - Tenderness [Unknown]

NARRATIVE: CASE EVENT DATE: 2020
